FAERS Safety Report 5894780-6 (Version None)
Quarter: 2008Q3

REPORT INFORMATION
  Report Type: 
  Country: None (occurrence: None)
  Receive Date: 20080924
  Receipt Date: 20080617
  Transmission Date: 20090109
  Serious: No
  Sender: FDA-Public Use
  Company Number: US-ASTRAZENECA-2008UW12189

PATIENT
  Sex: Female

DRUGS (1)
  1. SEROQUEL [Suspect]
     Dosage: SEROQUEL 200 MG IN AM AND 300 MG IN PM
     Route: 048

REACTIONS (1)
  - DRUG SCREEN POSITIVE [None]
